FAERS Safety Report 5807208-9 (Version None)
Quarter: 2008Q3

REPORT INFORMATION
  Report Type: 
  Country: None (occurrence: None)
  Receive Date: 20080711
  Receipt Date: 20080702
  Transmission Date: 20090109
  Serious: Yes (Other)
  Sender: FDA-Public Use
  Company Number: B0527865A

PATIENT
  Age: 68 Year
  Sex: Female
  Weight: 68 kg

DRUGS (2)
  1. AVANDAMET [Suspect]
     Dosage: 2TAB PER DAY
     Route: 048
     Dates: start: 20060101
  2. DIAMICRON [Concomitant]
     Dosage: 120MG PER DAY
     Route: 048

REACTIONS (5)
  - CATARACT [None]
  - DIABETES MELLITUS INADEQUATE CONTROL [None]
  - RETINAL DISORDER [None]
  - VISION BLURRED [None]
  - VISUAL IMPAIRMENT [None]
